FAERS Safety Report 7053570-1 (Version None)
Quarter: 2010Q4

REPORT INFORMATION
  Report Type: 
  Country: None (occurrence: None)
  Receive Date: 20101020
  Receipt Date: 20101005
  Transmission Date: 20110411
  Serious: Yes (Hospitalization, Other)
  Sender: FDA-Public Use
  Company Number: US-ROCHE-721926

PATIENT
  Sex: Female
  Weight: 68 kg

DRUGS (2)
  1. ACCUTANE [Suspect]
     Indication: ACNE
     Route: 065
     Dates: start: 19920101, end: 19920101
  2. ACCUTANE [Suspect]
     Route: 065
     Dates: start: 19930101, end: 19930301

REACTIONS (12)
  - COLITIS ULCERATIVE [None]
  - CROHN'S DISEASE [None]
  - DEPRESSION [None]
  - ERYTHEMA NODOSUM [None]
  - INFLAMMATORY BOWEL DISEASE [None]
  - INTESTINAL ANASTOMOSIS COMPLICATION [None]
  - INTESTINAL OBSTRUCTION [None]
  - NEPHROLITHIASIS [None]
  - ORAL HERPES [None]
  - PANCREATITIS ACUTE [None]
  - PROCTITIS [None]
  - RECTAL ABSCESS [None]
